FAERS Safety Report 17794658 (Version 1)
Quarter: 2020Q2

REPORT INFORMATION
  Report Type: Spontaneous
  Country: US (occurrence: US)
  Receive Date: 20200515
  Receipt Date: 20200515
  Transmission Date: 20200714
  Serious: No
  Sender: FDA-Public Use
  Company Number: US-PFIZER INC-2020190814

PATIENT
  Age: 61 Year
  Sex: Female
  Weight: 72.57 kg

DRUGS (2)
  1. SERTRALINE HCL [Suspect]
     Active Substance: SERTRALINE HYDROCHLORIDE
     Dosage: 50 MG
  2. SERTRALINE HCL [Suspect]
     Active Substance: SERTRALINE HYDROCHLORIDE
     Indication: DEPRESSION
     Dosage: 25 MG, DAILY
     Route: 048

REACTIONS (5)
  - Malaise [Unknown]
  - Intentional product misuse [Unknown]
  - Irritability [Unknown]
  - Tremor [Unknown]
  - Hyperhidrosis [Unknown]
